FAERS Safety Report 22532664 (Version 1)
Quarter: 2023Q2

REPORT INFORMATION
  Report Type: Report from Study
  Country: BR (occurrence: BR)
  Receive Date: 20230607
  Receipt Date: 20230607
  Transmission Date: 20230721
  Serious: Yes (Death, Other)
  Sender: FDA-Public Use
  Company Number: BR-002147023-NVSC2020BR177442

PATIENT
  Age: 71 Year
  Sex: Male

DRUGS (1)
  1. GLYCOPYRRONIUM\INDACATEROL [Suspect]
     Active Substance: GLYCOPYRRONIUM\INDACATEROL
     Indication: Product used for unknown indication
     Dosage: (START DATE 2 YEARS AGO)(DOSE110MCG+50MCG)
     Route: 065
     Dates: end: 202005

REACTIONS (6)
  - Sepsis [Fatal]
  - Cardiac arrest [Unknown]
  - Respiratory arrest [Unknown]
  - Coma [Unknown]
  - Lung disorder [Not Recovered/Not Resolved]
  - Chronic obstructive pulmonary disease [Not Recovered/Not Resolved]

NARRATIVE: CASE EVENT DATE: 20200611
